FAERS Safety Report 19239432 (Version 2)
Quarter: 2021Q2

REPORT INFORMATION
  Report Type: Report from Study
  Country: NL (occurrence: NL)
  Receive Date: 20210510
  Receipt Date: 20210513
  Transmission Date: 20210717
  Serious: Yes (Other)
  Sender: FDA-Public Use
  Company Number: NL-IPSEN BIOPHARMACEUTICALS, INC.-2021-09122

PATIENT
  Age: 58 Year
  Sex: Female

DRUGS (1)
  1. SOMATULINE AUTOSOLUTION [Suspect]
     Active Substance: LANREOTIDE ACETATE
     Indication: NEUROENDOCRINE TUMOUR
     Route: 058
     Dates: start: 20181211

REACTIONS (3)
  - Snoring [Recovering/Resolving]
  - Hypoglycaemia [Not Recovered/Not Resolved]
  - Hypoglycaemic coma [Recovering/Resolving]

NARRATIVE: CASE EVENT DATE: 20210313
